FAERS Safety Report 9440914 (Version 2)
Quarter: 2013Q3

REPORT INFORMATION
  Report Type: Report from Study
  Country: BR (occurrence: BR)
  Receive Date: 20130805
  Receipt Date: 20130806
  Transmission Date: 20140515
  Serious: Yes (Hospitalization, Other)
  Sender: FDA-Public Use
  Company Number: PHHY2013BR082900

PATIENT
  Sex: Male
  Weight: 54 kg

DRUGS (3)
  1. FORASEQ [Suspect]
     Indication: ASTHMA
     Dosage: UNK UKN, QD
  2. FORASEQ [Suspect]
     Dosage: UNK UKN, BID
  3. ATROVENT [Concomitant]
     Indication: ASTHMA
     Dosage: 10 DRP, UNK

REACTIONS (5)
  - Cerebrovascular accident [Recovering/Resolving]
  - Ischaemia [Recovering/Resolving]
  - Amnesia [Recovered/Resolved]
  - Diabetes mellitus [Recovering/Resolving]
  - Asthma [Recovering/Resolving]
